FAERS Safety Report 4721415-8 (Version None)
Quarter: 2005Q3

REPORT INFORMATION
  Report Type: 
  Country: None (occurrence: None)
  Receive Date: 20050721
  Receipt Date: 20040817
  Transmission Date: 20060218
  Serious: No
  Sender: FDA-Public Use
  Company Number: US-BRISTOL-MYERS SQUIBB COMPANY-12673893

PATIENT
  Age: 67 Year
  Sex: Female
  Weight: 113 kg

DRUGS (5)
  1. COUMADIN [Suspect]
     Indication: ATRIAL FIBRILLATION
     Dosage: VARYING DOSES-3 YRS, CURRENT DOSE:10MG TWICE A WEEK + 7.5 MG DAILY-5 TIMES WEEKLY
     Route: 048
  2. ATENOLOL [Concomitant]
  3. MULTI-VITAMIN [Concomitant]
  4. GLUCOSAMINE [Concomitant]
  5. CHONDROITIN [Concomitant]

REACTIONS (1)
  - RASH PAPULAR [None]
